FAERS Safety Report 8964582 (Version 3)
Quarter: 2013Q1

REPORT INFORMATION
  Report Type: Report from Study
  Country: DE (occurrence: DE)
  Receive Date: 20121214
  Receipt Date: 20130201
  Transmission Date: 20140127
  Serious: Yes (Hospitalization)
  Sender: FDA-Public Use
  Company Number: DE-BRISTOL-MYERS SQUIBB COMPANY-17075920

PATIENT
  Age: 47 Year
  Sex: Male
  Weight: 95 kg

DRUGS (11)
  1. ERBITUX SOLN FOR INF [Suspect]
     Indication: COLORECTAL CANCER METASTATIC
     Dosage: 25OCT11:500 MG/M2 RECENT DOSE:05SEP12 AND 19SEP12
     Route: 042
     Dates: start: 20111011
  2. PANTOZOL [Concomitant]
     Indication: PROPHYLAXIS
     Dates: start: 20111006
  3. 5-FLUOROURACIL [Concomitant]
     Indication: COLON CANCER
     Dosage: LAST DOSE:19SEP2012.
     Route: 042
  4. FOLINIC ACID [Concomitant]
     Indication: COLORECTAL CANCER
     Dosage: LAST DOSE:19SEP2012.
     Route: 042
     Dates: start: 20111011, end: 20120919
  5. IRINOTECAN [Concomitant]
     Indication: COLORECTAL CANCER
     Dosage: LAST DOSE:21FEB12
     Route: 042
     Dates: start: 20111011, end: 20120221
  6. ANTIHISTAMINE NOS [Concomitant]
     Indication: PREMEDICATION
     Dates: start: 20111011, end: 20111011
  7. CORTICOSTEROID [Concomitant]
     Indication: PREMEDICATION
     Dosage: ONCE
     Route: 042
     Dates: start: 20111011, end: 20111011
  8. RANITIDINE [Concomitant]
     Indication: PREMEDICATION
     Dosage: ONCE
     Route: 042
     Dates: start: 20111011, end: 20111011
  9. DIPHENHYDRAMINE [Concomitant]
     Indication: PREMEDICATION
     Dosage: ONCE
     Route: 048
     Dates: start: 20111011, end: 20111011
  10. ALLOPURINOL [Concomitant]
     Indication: HYPERURICAEMIA
     Dates: start: 20111006
  11. TOREM [Concomitant]
     Indication: POLYURIA
     Dates: start: 20111006

REACTIONS (1)
  - Acute respiratory distress syndrome [Recovered/Resolved with Sequelae]
